FAERS Safety Report 11981469 (Version 1)
Quarter: 2016Q1

REPORT INFORMATION
  Report Type: Spontaneous
  Country: US (occurrence: None)
  Receive Date: 20160129
  Receipt Date: 20160129
  Transmission Date: 20160526
  Serious: No
  Sender: FDA-Public Use
  Company Number: None

PATIENT
  Age: 32 Year
  Sex: Female
  Weight: 78.4 kg

DRUGS (14)
  1. NORVASC [Concomitant]
     Active Substance: AMLODIPINE BESYLATE
  2. CATAPRES-TTS [Concomitant]
     Active Substance: CLONIDINE
  3. HUMALOG [Suspect]
     Active Substance: INSULIN LISPRO
     Indication: DIABETES MELLITUS
     Route: 058
  4. PEPCID [Concomitant]
     Active Substance: FAMOTIDINE
  5. LIPITOR [Concomitant]
     Active Substance: ATORVASTATIN CALCIUM
  6. ZEMPLAR [Concomitant]
     Active Substance: PARICALCITOL
  7. HUMALOG MIX [Suspect]
     Active Substance: INSULIN LISPRO
     Indication: DIABETES MELLITUS
     Route: 058
  8. COREG [Concomitant]
     Active Substance: CARVEDILOL
  9. VIT. D [Concomitant]
  10. PHENERGAN [Concomitant]
     Active Substance: PROMETHAZINE HYDROCHLORIDE
  11. DIOVAN [Concomitant]
     Active Substance: VALSARTAN
  12. APRESOLINE HYDROCHLORIDE [Concomitant]
     Active Substance: HYDRALAZINE HYDROCHLORIDE
  13. FOLVITE [Concomitant]
     Active Substance: FOLIC ACID
  14. PRILOSEC [Concomitant]
     Active Substance: OMEPRAZOLE MAGNESIUM

REACTIONS (7)
  - Bradycardia [None]
  - Hypoglycaemia [None]
  - Lethargy [None]
  - Unresponsive to stimuli [None]
  - Seizure [None]
  - Pulseless electrical activity [None]
  - Cardiac arrest [None]

NARRATIVE: CASE EVENT DATE: 20150307
